FAERS Safety Report 6730087-2 (Version None)
Quarter: 2010Q2

REPORT INFORMATION
  Report Type: 
  Country: None (occurrence: None)
  Receive Date: 20100513
  Receipt Date: 20100506
  Transmission Date: 20101027
  Serious: Yes (Other)
  Sender: FDA-Public Use
  Company Number: A0856851A

PATIENT
  Age: 73 Year
  Sex: Female

DRUGS (1)
  1. SODIUM FLUORIDE + ISOPENTANE + POTASSIUM NITRATE (FORMULATION (NAFLUOR [Suspect]
     Indication: DENTAL CLEANING
     Dosage: DENTAL
     Route: 004
     Dates: start: 20100423, end: 20100424

REACTIONS (6)
  - APNOEA [None]
  - CHOKING [None]
  - FEAR [None]
  - INCORRECT ROUTE OF DRUG ADMINISTRATION [None]
  - OROPHARYNGEAL PAIN [None]
  - VOMITING [None]
